FAERS Safety Report 16024987 (Version 2)
Quarter: 2019Q1

REPORT INFORMATION
  Report Type: Spontaneous
  Country: US (occurrence: US)
  Receive Date: 20190301
  Receipt Date: 20190329
  Transmission Date: 20190418
  Serious: No
  Sender: FDA-Public Use
  Company Number: US-SA-2019SA052233

PATIENT
  Age: 64 Year
  Sex: Male

DRUGS (1)
  1. LANTUS [Suspect]
     Active Substance: INSULIN GLARGINE
     Indication: TYPE 2 DIABETES MELLITUS
     Dosage: 90 U, QD
     Route: 065
     Dates: start: 20010615

REACTIONS (2)
  - Tremor [Unknown]
  - Blood glucose increased [Recovered/Resolved]
